FAERS Safety Report 24618641 (Version 1)
Quarter: 2024Q4

REPORT INFORMATION
  Report Type: Spontaneous
  Country: US (occurrence: None)
  Receive Date: 20241113
  Receipt Date: 20241113
  Transmission Date: 20250114
  Serious: Yes (Other)
  Sender: Public
  Company Number: None

PATIENT
  Age: 57 Year
  Sex: Male
  Weight: 96.75 kg

DRUGS (1)
  1. CHLORHEXIDINE GLUCONATE [Suspect]
     Active Substance: CHLORHEXIDINE GLUCONATE
     Indication: Preoperative care
     Dates: start: 20241113, end: 20241113

REACTIONS (7)
  - Urticaria [None]
  - Application site hypersensitivity [None]
  - Heart rate decreased [None]
  - Blood pressure decreased [None]
  - Cold sweat [None]
  - Hyperhidrosis [None]
  - Presyncope [None]

NARRATIVE: CASE EVENT DATE: 20241113
